FAERS Safety Report 4870910-X (Version None)
Quarter: 2005Q4

REPORT INFORMATION
  Report Type: 
  Country: None (occurrence: None)
  Receive Date: 20051229
  Receipt Date: 20051222
  Transmission Date: 20060501
  Serious: Yes (Other)
  Sender: FDA-Public Use
  Company Number: NLWYE234914DEC05

PATIENT
  Age: 35 Year
  Sex: Female

DRUGS (1)
  1. STEDIRIL-30 (LEVONORGESTREL/ETHINYL ESTRADIOL, TABLET, 0) [Suspect]
     Indication: CONTRACEPTION
     Dosage: 1 TABLET 1X PER 1 DAY ORAL
     Route: 048

REACTIONS (2)
  - ANGER [None]
  - DEPRESSION [None]
